FAERS Safety Report 4895446-1 (Version None)
Quarter: 2006Q1

REPORT INFORMATION
  Report Type: 
  Country: None (occurrence: None)
  Receive Date: 20060130
  Receipt Date: 20060124
  Transmission Date: 20060701
  Serious: Yes (Other)
  Sender: FDA-Public Use
  Company Number: JP-AVENTIS-200610229JP

PATIENT
  Age: 75 Year
  Sex: Male

DRUGS (2)
  1. KETEK [Suspect]
     Indication: PNEUMONIA
     Route: 048
     Dates: start: 20041122, end: 20041126
  2. RULID [Concomitant]
     Route: 048
     Dates: start: 20041120, end: 20041122

REACTIONS (1)
  - ENTEROCOLITIS [None]
